FAERS Safety Report 25423625 (Version 1)
Quarter: 2025Q2

REPORT INFORMATION
  Report Type: Report from Study
  Country: US (occurrence: US)
  Receive Date: 20250611
  Receipt Date: 20250611
  Transmission Date: 20250717
  Serious: Yes (Hospitalization, Other)
  Sender: PFIZER
  Company Number: US-PFIZER INC-PV202500056483

PATIENT
  Age: 15 Year
  Sex: Female

DRUGS (5)
  1. INLYTA [Suspect]
     Active Substance: AXITINIB
     Indication: Renal cell carcinoma
     Dosage: 3 MG, 2X/DAY (TWICE DAILY)
     Route: 048
     Dates: start: 202503, end: 202504
  2. INLYTA [Suspect]
     Active Substance: AXITINIB
     Dosage: 3 MG, 2X/DAY (TWICE DAILY)
     Route: 048
     Dates: start: 20250427, end: 202505
  3. CELEBREX [Concomitant]
     Active Substance: CELECOXIB
  4. LYRICA [Concomitant]
     Active Substance: PREGABALIN
  5. KEYTRUDA [Concomitant]
     Active Substance: PEMBROLIZUMAB
     Dates: end: 202505

REACTIONS (5)
  - Hypertension [Recovered/Resolved]
  - Ejection fraction decreased [Not Recovered/Not Resolved]
  - Dental operation [Unknown]
  - Pain in extremity [Not Recovered/Not Resolved]
  - Off label use [Unknown]

NARRATIVE: CASE EVENT DATE: 20250101
